FAERS Safety Report 19835942 (Version 1)
Quarter: 2021Q3

REPORT INFORMATION
  Report Type: Spontaneous
  Country: FR (occurrence: FR)
  Receive Date: 20210915
  Receipt Date: 20210915
  Transmission Date: 20211014
  Serious: Yes (Hospitalization)
  Sender: FDA-Public Use
  Company Number: FR-MYLANLABS-2021M1061553

PATIENT
  Age: 94 Year
  Sex: Male

DRUGS (11)
  1. TAHOR [Interacting]
     Active Substance: ATORVASTATIN CALCIUM
     Indication: DYSLIPIDAEMIA
     Dosage: 20 MILLIGRAM, QD, 1/DAY
     Route: 048
     Dates: start: 20120601
  2. OMIX [Concomitant]
     Active Substance: TAMSULOSIN HYDROCHLORIDE
     Indication: PROSTATE CANCER
     Dosage: 0.4 MILLIGRAM, QD, 1/DAY
     Route: 048
     Dates: start: 20090101
  3. FUROSEMIDE. [Suspect]
     Active Substance: FUROSEMIDE
     Indication: MYOCARDIAL ISCHAEMIA
     Dosage: 40 MILLIGRAM, QD, 1/DAY
     Route: 048
     Dates: start: 20190629
  4. XARELTO [Suspect]
     Active Substance: RIVAROXABAN
     Indication: ATRIAL FIBRILLATION
     Dosage: 15 MILLIGRAM, QD, 1/DAY
     Route: 048
     Dates: start: 20180901, end: 20210320
  5. PAROXETINE. [Interacting]
     Active Substance: PAROXETINE
     Indication: DEPRESSION
     Dosage: 20 MILLIGRAM, QD, 1/DAY
     Route: 048
     Dates: start: 20210318, end: 20210320
  6. MOLSIDOMINE [Concomitant]
     Active Substance: MOLSIDOMINE
     Indication: MYOCARDIAL ISCHAEMIA
     Dosage: 2 MGX3/JOUR (1?1?1)
     Route: 048
     Dates: start: 20100326
  7. PREDNISOLONE BIOGARAN [Suspect]
     Active Substance: PREDNISOLONE
     Indication: PAIN
     Dosage: 10 MG IN THE MORNING
     Route: 048
     Dates: start: 20210318, end: 20210320
  8. OMEPRAZOLE. [Concomitant]
     Active Substance: OMEPRAZOLE
     Indication: GASTRIC ULCER
     Dosage: 1 DOSAGE FORM, QD, 1/DAY
     Route: 048
     Dates: start: 20090101
  9. METOPROLOL. [Concomitant]
     Active Substance: METOPROLOL
     Indication: MYOCARDIAL ISCHAEMIA
     Dosage: 100 MILLIGRAM, QD, 1/DAY
     Route: 048
     Dates: start: 20191201
  10. IXPRIM [Concomitant]
     Active Substance: ACETAMINOPHEN\TRAMADOL HYDROCHLORIDE
     Indication: PAIN
     Dosage: 1 DOSAGE FORM, QD, 1/DAY
     Route: 048
     Dates: start: 20130901
  11. INNOHEP [Concomitant]
     Active Substance: TINZAPARIN SODIUM
     Indication: THROMBOSIS PROPHYLAXIS
     Dosage: 1 DOSAGE FORM, QD, 1/JOUR
     Route: 058
     Dates: start: 20210326

REACTIONS (2)
  - Rectal haemorrhage [Recovered/Resolved]
  - Drug interaction [Unknown]

NARRATIVE: CASE EVENT DATE: 20210320
